FAERS Safety Report 10603350 (Version 1)
Quarter: 2014Q4

REPORT INFORMATION
  Report Type: Spontaneous
  Country: US (occurrence: US)
  Receive Date: 20141124
  Receipt Date: 20141124
  Transmission Date: 20150529
  Serious: Yes (Hospitalization, Other)
  Sender: FDA-Public Use
  Company Number: US-ELI_LILLY_AND_COMPANY-US201411007810

PATIENT
  Age: 52 Year
  Sex: Female

DRUGS (5)
  1. INSULIN HUMAN [Suspect]
     Active Substance: INSULIN HUMAN
     Dosage: 24.47 U, QD
     Route: 058
     Dates: start: 20141106, end: 20141106
  2. INSULIN HUMAN [Suspect]
     Active Substance: INSULIN HUMAN
     Dosage: 39.05 U, QD
     Route: 058
     Dates: start: 20141107, end: 20141107
  3. INSULIN HUMAN [Suspect]
     Active Substance: INSULIN HUMAN
     Dosage: 23.40 U, QD
     Route: 058
     Dates: start: 20141104, end: 20141104
  4. INSULIN HUMAN [Suspect]
     Active Substance: INSULIN HUMAN
     Dosage: 20.85 U, QD
     Route: 058
     Dates: start: 20141105, end: 20141105
  5. INSULIN HUMAN [Suspect]
     Active Substance: INSULIN HUMAN
     Indication: PRODUCT USED FOR UNKNOWN INDICATION
     Dosage: 11.5 U, QD BASAL
     Route: 058

REACTIONS (2)
  - Wrong technique in drug usage process [Unknown]
  - Blood glucose decreased [Recovered/Resolved]

NARRATIVE: CASE EVENT DATE: 20141108
